FAERS Safety Report 22136845 (Version 3)
Quarter: 2023Q2

REPORT INFORMATION
  Report Type: Report from Study
  Country: US (occurrence: US)
  Receive Date: 20230324
  Receipt Date: 20230605
  Transmission Date: 20230722
  Serious: Yes (Other)
  Sender: FDA-Public Use
  Company Number: US-002147023-NVSC2023US064973

PATIENT
  Age: 24 Year
  Sex: Male
  Weight: 106.59 kg

DRUGS (6)
  1. COSENTYX [Suspect]
     Active Substance: SECUKINUMAB
     Indication: Psoriatic arthropathy
     Dosage: 300 MG, QMO
     Route: 058
  2. COSENTYX [Suspect]
     Active Substance: SECUKINUMAB
     Indication: Psoriasis
     Dosage: 150 MG, QMO
     Route: 058
  3. FLUOCINONIDE [Suspect]
     Active Substance: FLUOCINONIDE
     Indication: Psoriatic arthropathy
     Dosage: 0.05 %, PRN
     Route: 061
  4. FLUOCINONIDE [Suspect]
     Active Substance: FLUOCINONIDE
     Indication: Psoriasis
  5. HALOBETASOL PROPIONATE [Suspect]
     Active Substance: HALOBETASOL PROPIONATE
     Indication: Psoriatic arthropathy
     Dosage: 0.05 %, PRN
     Route: 061
  6. HALOBETASOL PROPIONATE [Suspect]
     Active Substance: HALOBETASOL PROPIONATE
     Indication: Psoriasis

REACTIONS (2)
  - Psoriatic arthropathy [Unknown]
  - Psoriasis [Unknown]

NARRATIVE: CASE EVENT DATE: 20201201
